FAERS Safety Report 8190278-3 (Version None)
Quarter: 2012Q1

REPORT INFORMATION
  Report Type: 
  Country: None (occurrence: None)
  Receive Date: 20120307
  Receipt Date: 20120228
  Transmission Date: 20120608
  Serious: Yes (Hospitalization)
  Sender: FDA-Public Use
  Company Number: CA-JNJFOC-20120214633

PATIENT
  Sex: Female
  Weight: 43 kg

DRUGS (4)
  1. REMICADE [Suspect]
     Indication: COLITIS ULCERATIVE
     Route: 042
     Dates: start: 20080613, end: 20120106
  2. PREDNISONE TAB [Concomitant]
     Route: 065
  3. IMURAN [Concomitant]
     Route: 065
  4. ASACOL [Concomitant]
     Route: 065

REACTIONS (1)
  - COLECTOMY TOTAL [None]
